FAERS Safety Report 7687691-7 (Version None)
Quarter: 2011Q3

REPORT INFORMATION
  Report Type: 
  Country: None (occurrence: None)
  Receive Date: 20110817
  Receipt Date: 20110817
  Transmission Date: 20111222
  Serious: Yes (Death, Hospitalization, Other)
  Sender: FDA-Public Use
  Company Number: PHHO2010US15029

PATIENT
  Sex: Male
  Weight: 72.6 kg

DRUGS (11)
  1. SILDENAFIL CITRATE [Concomitant]
  2. IMATINIB MESYLATE [Suspect]
     Dosage: DOUBLE BLIND
     Route: 048
     Dates: start: 20100913, end: 20100929
  3. ZOLPIDEM TARTRATE [Concomitant]
  4. RANITIDINE [Concomitant]
  5. TREPROSTINOL [Concomitant]
  6. FAMOTIDINE [Concomitant]
  7. IMATINIB MESYLATE [Suspect]
     Indication: PULMONARY ARTERIAL HYPERTENSION
     Dosage: 100 MG, UNK
     Route: 048
     Dates: start: 20100830, end: 20100912
  8. AMBRISENTAN [Concomitant]
  9. IMATINIB MESYLATE [Suspect]
     Dosage: DOUBLE BLIND
     Route: 048
     Dates: start: 20100930, end: 20100930
  10. WARFARIN SODIUM [Concomitant]
  11. ASPIRIN [Concomitant]

REACTIONS (15)
  - ATELECTASIS [None]
  - DYSPNOEA [None]
  - HYPOXIA [None]
  - PULMONARY HYPERTENSION [None]
  - FLUID OVERLOAD [None]
  - FACE OEDEMA [None]
  - PNEUMONIA [None]
  - EMPHYSEMA [None]
  - PNEUMONITIS [None]
  - DISEASE PROGRESSION [None]
  - RESPIRATORY FAILURE [None]
  - PERIORBITAL OEDEMA [None]
  - OEDEMA PERIPHERAL [None]
  - ANAEMIA [None]
  - PLEURAL EFFUSION [None]
